FAERS Safety Report 5200955-1 (Version None)
Quarter: 2007Q1

REPORT INFORMATION
  Report Type: 
  Country: None (occurrence: None)
  Receive Date: 20070103
  Receipt Date: 20061220
  Transmission Date: 20070707
  Serious: Yes (Hospitalization, Other)
  Sender: FDA-Public Use
  Company Number: 2006SP007500

PATIENT
  Age: 17 Year
  Sex: Female

DRUGS (2)
  1. BETAMETHASONE [Suspect]
     Indication: INFLUENZA
     Dosage: 6 MG;QD;IM
     Route: 030
  2. CLARITHROMYCIN [Suspect]
     Indication: INFLUENZA
     Dosage: 6 MG;QD;IM
     Route: 030

REACTIONS (9)
  - AFFECT LABILITY [None]
  - CONFUSIONAL STATE [None]
  - DELUSION OF GRANDEUR [None]
  - DISORIENTATION [None]
  - LOGORRHOEA [None]
  - MANIA [None]
  - PERSONALITY CHANGE [None]
  - PSYCHOMOTOR HYPERACTIVITY [None]
  - SLEEP DISORDER [None]
